FAERS Safety Report 16986034 (Version 1)
Quarter: 2019Q4

REPORT INFORMATION
  Report Type: Spontaneous
  Country: US (occurrence: US)
  Receive Date: 20190918
  Receipt Date: 20190918
  Transmission Date: 20200122
  Serious: No
  Sender: FDA-Public Use
  Company Number: None

PATIENT
  Age: 63 Year
  Sex: Female

DRUGS (2)
  1. LETROZOLE ++ 2.5MG BRECKENRIDGE [Suspect]
     Active Substance: LETROZOLE
     Indication: BREAST CANCER
     Dosage: ?          OTHER DOSE:2.5;?
     Route: 048
     Dates: start: 20180907
  2. IBRANCE [Suspect]
     Active Substance: PALBOCICLIB
     Indication: BREAST CANCER
     Dosage: ?          OTHER FREQUENCY:ONCE DAILY FOR 21D;?
     Route: 048
     Dates: start: 20180907

REACTIONS (2)
  - Alopecia [None]
  - Adverse drug reaction [None]

NARRATIVE: CASE EVENT DATE: 20190702
